FAERS Safety Report 12667796 (Version 1)
Quarter: 2016Q3

REPORT INFORMATION
  Report Type: Report from Study
  Country: US (occurrence: US)
  Receive Date: 20160819
  Receipt Date: 20160819
  Transmission Date: 20161109
  Serious: Yes (Hospitalization)
  Sender: FDA-Public Use
  Company Number: US-VERTEX PHARMACEUTICALS-2016-003920

PATIENT
  Age: 12 Year
  Sex: Male

DRUGS (18)
  1. URSO 300 [Concomitant]
  2. PROTONIX [Concomitant]
     Active Substance: PANTOPRAZOLE SODIUM
  3. EPIPEN [Concomitant]
     Active Substance: EPINEPHRINE
  4. QVAR [Concomitant]
     Active Substance: BECLOMETHASONE DIPROPIONATE
  5. MULTIVITAMIN [Concomitant]
     Active Substance: VITAMINS
  6. URSODIOL. [Concomitant]
     Active Substance: URSODIOL
  7. MEPHYTON [Concomitant]
     Active Substance: PHYTONADIONE
  8. VENTOLIN [Concomitant]
     Active Substance: ALBUTEROL SULFATE
  9. ORKAMBI [Suspect]
     Active Substance: IVACAFTOR\LUMACAFTOR
     Indication: CYSTIC FIBROSIS
     Dosage: 400-250 MG, BID
     Route: 048
     Dates: start: 20160303
  10. SINGULAIR [Concomitant]
     Active Substance: MONTELUKAST SODIUM
  11. NASONEX [Concomitant]
     Active Substance: MOMETASONE FUROATE
  12. PROVENTIL [Concomitant]
     Active Substance: ALBUTEROL
  13. CLARITIN [Concomitant]
     Active Substance: LORATADINE
  14. HYPERSAL [Concomitant]
  15. EPIPEN JR [Concomitant]
     Active Substance: EPINEPHRINE
  16. AQUADEKS [Concomitant]
     Active Substance: MINERALS\VITAMINS
  17. CREON [Concomitant]
     Active Substance: PANCRELIPASE AMYLASE\PANCRELIPASE LIPASE\PANCRELIPASE PROTEASE
  18. PULMOZYME [Concomitant]
     Active Substance: DORNASE ALFA

REACTIONS (1)
  - Tracheobronchitis [Recovered/Resolved]

NARRATIVE: CASE EVENT DATE: 20160523
